FAERS Safety Report 7090856-9 (Version None)
Quarter: 2010Q4

REPORT INFORMATION
  Report Type: 
  Country: None (occurrence: None)
  Receive Date: 20101109
  Receipt Date: 20101101
  Transmission Date: 20110411
  Serious: Yes (Death, Life-Threatening, Hospitalization, Other)
  Sender: FDA-Public Use
  Company Number: JP-BAYER-201015294BYL

PATIENT
  Age: 77 Year
  Sex: Male
  Weight: 61 kg

DRUGS (28)
  1. NEXAVAR [Suspect]
     Indication: HEPATIC NEOPLASM MALIGNANT
     Dosage: TOTAL DAILY DOSE: 800 MG  UNIT DOSE: 200 MG
     Route: 048
     Dates: start: 20101006, end: 20101016
  2. MAGNESIUM OXIDE [Concomitant]
     Indication: CONSTIPATION
     Dosage: TOTAL DAILY DOSE: 990 MG
     Route: 065
     Dates: start: 20060403, end: 20101019
  3. SENNA LEAF [Concomitant]
     Indication: CONSTIPATION
     Route: 065
     Dates: start: 20060327, end: 20101019
  4. SPIRONOLACTONE [Concomitant]
     Indication: HYPERTENSION
     Dosage: TOTAL DAILY DOSE: 25 MG
     Route: 065
     Dates: start: 20090914, end: 20101019
  5. MEDICON [Concomitant]
     Indication: ASTHMA
     Dosage: TOTAL DAILY DOSE: 30 MG
     Route: 065
     Dates: start: 20060507, end: 20101019
  6. FUROSEMIDE [Concomitant]
     Indication: URINE OUTPUT DECREASED
     Dosage: TOTAL DAILY DOSE: 20 MG
     Route: 065
     Dates: start: 20100714, end: 20100802
  7. CODEINE PHOSPHATE [Concomitant]
     Indication: ASTHMA
     Dosage: TOTAL DAILY DOSE: 4 MG
     Route: 065
     Dates: start: 20080714, end: 20101019
  8. OLMESARTAN MEDOXOMIL [Concomitant]
     Indication: HYPERTENSION
     Dosage: TOTAL DAILY DOSE: 20 MG
     Route: 065
     Dates: start: 19950101, end: 20101019
  9. URSODIOL [Concomitant]
     Indication: HEPATITIS C
     Dosage: TOTAL DAILY DOSE: 600 MG
     Route: 065
     Dates: start: 19870101, end: 20101019
  10. CELIPROLOL HYDROCHLORIDE [Concomitant]
     Indication: HYPERTENSION
     Dosage: TOTAL DAILY DOSE: 200 MG
     Route: 065
     Dates: start: 19950101, end: 20101019
  11. DOXAZOSIN MESYLATE [Concomitant]
     Indication: HYPERTENSION
     Dosage: TOTAL DAILY DOSE: 2 MG
     Route: 065
     Dates: start: 19950101, end: 20101019
  12. MONTELUKAST SODIUM [Concomitant]
     Indication: ASTHMA
     Dosage: TOTAL DAILY DOSE: 10 MG
     Route: 065
     Dates: start: 20080808, end: 20101019
  13. NIFEDIPINE [Concomitant]
     Indication: HYPERTENSION
     Dosage: TOTAL DAILY DOSE: 40 MG
     Route: 065
     Dates: start: 19950101, end: 20101019
  14. CICLESONIDE [Concomitant]
     Indication: ASTHMA
     Dosage: TOTAL DAILY DOSE: 2 DF
     Route: 065
     Dates: end: 20101019
  15. LAC-B [Concomitant]
     Indication: FLATULENCE
     Dosage: TOTAL DAILY DOSE: 3 G
     Route: 048
     Dates: start: 20101011, end: 20101019
  16. MORNIFLUMATE [Concomitant]
     Indication: INFECTION
     Dosage: TOTAL DAILY DOSE: 3 G
     Route: 065
     Dates: start: 20101018, end: 20101021
  17. MENATETRENONE [Concomitant]
     Indication: VITAMIN K DEFICIENCY
     Dosage: TOTAL DAILY DOSE: 30 MG
     Route: 065
     Dates: start: 20060101, end: 20101019
  18. TOFRANIL [Concomitant]
     Indication: BENIGN PROSTATIC HYPERPLASIA
     Dosage: TOTAL DAILY DOSE: 20 MG
     Route: 048
     Dates: start: 20060101, end: 20101019
  19. JUZENTAIHOTO [Concomitant]
     Indication: ENERGY INCREASED
     Dosage: TOTAL DAILY DOSE: 5 MG
     Route: 065
     Dates: start: 20060101, end: 20101019
  20. SULPIRIDE [Concomitant]
     Indication: GASTRIC ULCER
     Dosage: AS USED: 50 MG
     Route: 065
     Dates: start: 20060101, end: 20101019
  21. LOPERAMIDE HYDROCHLORIDE [Concomitant]
     Indication: CONSTIPATION
     Route: 065
     Dates: start: 20101011, end: 20101019
  22. PARACETAMOL [Concomitant]
     Indication: ANTIPYRESIS
     Route: 065
     Dates: start: 20100815, end: 20101019
  23. RETINOL [Concomitant]
     Indication: PALMAR-PLANTAR ERYTHRODYSAESTHESIA SYNDROME
     Route: 061
     Dates: start: 20101008, end: 20101019
  24. DEXAMETHASONE [Concomitant]
     Indication: STOMATITIS
     Route: 061
     Dates: start: 20101016, end: 20101019
  25. OMEPRAZOLE [Concomitant]
     Indication: GASTRIC ULCER
     Dosage: TOTAL DAILY DOSE: 20 MG
     Route: 048
     Dates: end: 20101019
  26. NEO-MINOPHAGEN C [Concomitant]
     Indication: HEPATITIS C
     Dosage: 40-60ML/ DAY
     Route: 042
     Dates: start: 20020101, end: 20101018
  27. URIEF [Concomitant]
     Indication: BENIGN PROSTATIC HYPERPLASIA
     Dosage: TOTAL DAILY DOSE: 4 MG
     Route: 048
     Dates: end: 20101019
  28. LOXOPROFEN [Concomitant]
     Indication: ANTIPYRESIS
     Dosage: TOTAL DAILY DOSE: 60 MG
     Route: 065
     Dates: start: 20101018, end: 20101018

REACTIONS (2)
  - ERYTHEMA MULTIFORME [None]
  - PULMONARY ALVEOLAR HAEMORRHAGE [None]
